FAERS Safety Report 16205451 (Version 2)
Quarter: 2019Q2

REPORT INFORMATION
  Report Type: Spontaneous
  Country: CN (occurrence: CN)
  Receive Date: 20190417
  Receipt Date: 20190503
  Transmission Date: 20190711
  Serious: Yes (Other)
  Sender: FDA-Public Use
  Company Number: CN-ACCORD-121696

PATIENT
  Age: 73 Year
  Sex: Male

DRUGS (2)
  1. CAPECITABINE. [Suspect]
     Active Substance: CAPECITABINE
     Indication: COLON CANCER
     Dosage: EVERY 3 WEEKS FOR 3 MONTHS,ALSO RECEIVED ON APR-2018
     Dates: start: 2017
  2. OXALIPLATIN. [Suspect]
     Active Substance: OXALIPLATIN
     Indication: COLON CANCER
     Dosage: EVERY 3 WEEKS FOR 3 MONTHS,ALSO RECEIVED ON APR-2018
     Dates: start: 2017

REACTIONS (3)
  - Vomiting [Unknown]
  - Bone marrow failure [Unknown]
  - Neurotoxicity [Unknown]
